FAERS Safety Report 6609704-3 (Version None)
Quarter: 2010Q1

REPORT INFORMATION
  Report Type: 
  Country: None (occurrence: None)
  Receive Date: 20100302
  Receipt Date: 20100226
  Transmission Date: 20100710
  Serious: Yes (Life-Threatening, Hospitalization, Congenital Anomaly, Other)
  Sender: FDA-Public Use
  Company Number: IN-ROXANE LABORATORIES, INC.-2010-RO-00210RO

PATIENT
  Age: 42 Day
  Sex: Female
  Weight: 2 kg

DRUGS (7)
  1. ZIDOVUDINE [Suspect]
     Indication: DRUG EXPOSURE DURING PREGNANCY
     Route: 064
  2. ZIDOVUDINE [Suspect]
  3. RIBOFLAVIN TAB [Suspect]
     Indication: BLOOD LACTATE DEHYDROGENASE ABNORMAL
  4. THIAMINE [Suspect]
     Indication: BLOOD LACTATE DEHYDROGENASE ABNORMAL
  5. COENZYME Q10 [Suspect]
     Indication: BLOOD LACTATE DEHYDROGENASE ABNORMAL
  6. L-CARNITINE [Suspect]
     Indication: BLOOD LACTATE DEHYDROGENASE ABNORMAL
  7. MULTI-VITAMIN [Concomitant]

REACTIONS (13)
  - ATRIAL SEPTAL DEFECT [None]
  - CAESAREAN SECTION [None]
  - DEHYDRATION [None]
  - DEVELOPMENTAL DELAY [None]
  - DIARRHOEA [None]
  - HEPATITIS [None]
  - LACTIC ACIDOSIS [None]
  - MATERNAL DRUGS AFFECTING FOETUS [None]
  - METABOLIC ACIDOSIS [None]
  - MITOCHONDRIAL TOXICITY [None]
  - NEONATAL ASPIRATION [None]
  - SMALL FOR DATES BABY [None]
  - VENTRICULAR SEPTAL DEFECT [None]
